FAERS Safety Report 4765918-9 (Version None)
Quarter: 2005Q3

REPORT INFORMATION
  Report Type: 
  Country: None (occurrence: None)
  Receive Date: 20050912
  Receipt Date: 20050905
  Transmission Date: 20060218
  Serious: Yes (Life-Threatening)
  Sender: FDA-Public Use
  Company Number: PHRM2005FR02378

PATIENT
  Age: 65 Year
  Sex: Male
  Weight: 94 kg

DRUGS (5)
  1. CAPTOPRIL [Concomitant]
     Route: 048
  2. DETENSIEL [Concomitant]
     Route: 048
  3. PHENOBARBITAL TAB [Concomitant]
     Route: 048
  4. KARDEGIC [Concomitant]
     Route: 048
  5. GLEEVEC [Suspect]
     Indication: CHRONIC MYELOID LEUKAEMIA
     Dosage: 400 MG/DAY
     Route: 048
     Dates: start: 20011203

REACTIONS (4)
  - POLLAKIURIA [None]
  - PROSTATE CANCER [None]
  - PROSTATECTOMY [None]
  - PROSTATIC SPECIFIC ANTIGEN INCREASED [None]
